FAERS Safety Report 8554549-0 (Version None)
Quarter: 2012Q3

REPORT INFORMATION
  Report Type: 
  Country: None (occurrence: None)
  Receive Date: 20120731
  Receipt Date: 20120713
  Transmission Date: 20120928
  Serious: No
  Sender: FDA-Public Use
  Company Number: US-ASTRAZENECA-2012SE37844

PATIENT
  Age: 75 Year
  Sex: Male

DRUGS (3)
  1. OTHER MEDICATIONS [Concomitant]
  2. SYMBICORT [Suspect]
     Dosage: 160/4.5 MCG BID
     Route: 055
     Dates: start: 20100101
  3. BLOOD PRESURRE MEDICATIONS [Concomitant]

REACTIONS (2)
  - DRUG PRESCRIBING ERROR [None]
  - PULMONARY FUNCTION TEST DECREASED [None]
